FAERS Safety Report 9678991 (Version 2)
Quarter: 2014Q1

REPORT INFORMATION
  Report Type: Spontaneous
  Country: US (occurrence: US)
  Receive Date: 20131108
  Receipt Date: 20140103
  Transmission Date: 20141002
  Serious: Yes (Other)
  Sender: FDA-Public Use
  Company Number: US-ASTRAZENECA-2013SE81435

PATIENT
  Age: 86 Year
  Sex: Male
  Weight: 65.8 kg

DRUGS (8)
  1. CASODEX [Suspect]
     Indication: PROSTATE CANCER
     Route: 048
     Dates: start: 2013
  2. HALDOL [Suspect]
     Route: 065
  3. ATIVAN [Suspect]
     Indication: AGITATION
     Route: 065
  4. COUMADIN [Concomitant]
  5. VASOTEC [Concomitant]
  6. LOPRESSOR [Concomitant]
  7. KEPPRA [Concomitant]
  8. FERROUS SULFATE [Concomitant]

REACTIONS (9)
  - Renal failure [Not Recovered/Not Resolved]
  - General physical health deterioration [Not Recovered/Not Resolved]
  - Dementia [Unknown]
  - Renal cyst [Unknown]
  - Hydronephrosis [Unknown]
  - Confusional state [Unknown]
  - Hypophagia [Unknown]
  - Anaemia [Recovered/Resolved]
  - Asthenia [Unknown]
